FAERS Safety Report 4645883-5 (Version None)
Quarter: 2005Q2

REPORT INFORMATION
  Report Type: 
  Country: None (occurrence: None)
  Receive Date: 20050427
  Receipt Date: 20050418
  Transmission Date: 20051028
  Serious: Yes (Other)
  Sender: FDA-Public Use
  Company Number: US-JNJFOC-20050404234

PATIENT
  Age: 9 Year
  Sex: Male

DRUGS (2)
  1. CONCERTA [Suspect]
     Route: 049
  2. CONCERTA [Suspect]
     Route: 049

REACTIONS (2)
  - HOMICIDAL IDEATION [None]
  - SUICIDAL IDEATION [None]
